FAERS Safety Report 25858753 (Version 2)
Quarter: 2025Q4

REPORT INFORMATION
  Report Type: Spontaneous
  Country: VN (occurrence: VN)
  Receive Date: 20250929
  Receipt Date: 20251112
  Transmission Date: 20260117
  Serious: Yes (Hospitalization, Other)
  Sender: TEVA
  Company Number: VN-TEVA-VS-3376822

PATIENT
  Age: 39 Year
  Sex: Female

DRUGS (2)
  1. PACLITAXEL [Suspect]
     Active Substance: PACLITAXEL
     Indication: Ovarian epithelial cancer stage IV
     Dosage: ON DAY 1 OF A 21-DAY COURSE AND RECEIVED TOTAL OF 8 CYCLES
     Route: 042
  2. CARBOPLATIN [Suspect]
     Active Substance: CARBOPLATIN
     Indication: Ovarian epithelial cancer stage IV
     Dosage: AUC 6 ON DAY 1 OF A 21-DAY COURSE AND RECEIVED TOTAL OF 8 CYCLES
     Route: 042

REACTIONS (2)
  - Neurotoxicity [Unknown]
  - Neutropenia [Unknown]
